FAERS Safety Report 6851760-1 (Version None)
Quarter: 2010Q3

REPORT INFORMATION
  Report Type: 
  Country: None (occurrence: None)
  Receive Date: 20100717
  Receipt Date: 20071026
  Transmission Date: 20110219
  Serious: No
  Sender: FDA-Public Use
  Company Number: US-PFIZER INC-2007092631

PATIENT
  Sex: Female
  Weight: 63.5 kg

DRUGS (8)
  1. CHANTIX [Suspect]
     Indication: SMOKING CESSATION THERAPY
     Dates: start: 20071024
  2. WELLBUTRIN XL [Concomitant]
  3. NEURONTIN [Concomitant]
  4. VIVELLE [Concomitant]
     Indication: MENIERE'S DISEASE
  5. ALL OTHER THERAPEUTIC PRODUCTS [Concomitant]
  6. CLARITIN [Concomitant]
  7. HYDROCHLOROTHIAZIDE [Concomitant]
     Indication: MENIERE'S DISEASE
  8. PROMETHAZINE [Concomitant]

REACTIONS (7)
  - ABDOMINAL DISCOMFORT [None]
  - DYSGEUSIA [None]
  - FEELING ABNORMAL [None]
  - FEELING JITTERY [None]
  - MUSCLE CONTRACTIONS INVOLUNTARY [None]
  - PANIC REACTION [None]
  - VOMITING [None]
